FAERS Safety Report 5245949-5 (Version None)
Quarter: 2007Q1

REPORT INFORMATION
  Report Type: 
  Country: None (occurrence: None)
  Receive Date: 20070214
  Receipt Date: 20070205
  Transmission Date: 20070707
  Serious: Yes (Hospitalization)
  Sender: FDA-Public Use
  Company Number: 2006-146121-NL

PATIENT
  Age: 24 Year
  Sex: Female

DRUGS (2)
  1. MENOTROPINS [Suspect]
     Indication: OVULATION INDUCTION
     Dosage: DF
  2. CHORIONIC GONADOTROPIN [Suspect]
     Indication: OVULATION INDUCTION

REACTIONS (4)
  - DRUG EXPOSURE BEFORE PREGNANCY [None]
  - JUGULAR VEIN THROMBOSIS [None]
  - OVARIAN HYPERSTIMULATION SYNDROME [None]
  - TWIN PREGNANCY [None]
